FAERS Safety Report 14661139 (Version 2)
Quarter: 2018Q2

REPORT INFORMATION
  Report Type: Spontaneous
  Country: US (occurrence: US)
  Receive Date: 20180320
  Receipt Date: 20180503
  Transmission Date: 20180711
  Serious: No
  Sender: FDA-Public Use
  Company Number: US-PFIZER INC-2017232600

PATIENT
  Age: 5 Year
  Sex: Male
  Weight: 24.94 kg

DRUGS (1)
  1. GENOTROPIN [Suspect]
     Active Substance: SOMATROPIN
     Indication: PRADER-WILLI SYNDROME
     Dosage: UNK, 1X/DAY, (ONCE DAILY AT NIGHT)
     Route: 058

REACTIONS (3)
  - Drug dose omission [Unknown]
  - Hypothyroidism [Unknown]
  - Device issue [Unknown]
